FAERS Safety Report 8492059-X (Version None)
Quarter: 2012Q3

REPORT INFORMATION
  Report Type: 
  Country: None (occurrence: None)
  Receive Date: 20120706
  Receipt Date: 20120702
  Transmission Date: 20120928
  Serious: Yes (Other)
  Sender: FDA-Public Use
  Company Number: JP-PFIZER INC-2012127483

PATIENT
  Age: 64 Year
  Sex: Male

DRUGS (8)
  1. LIVALO [Concomitant]
     Indication: DYSLIPIDAEMIA
     Dosage: ONCE A DAY
     Route: 048
     Dates: start: 20110223
  2. SELBEX [Concomitant]
     Indication: GASTRIC MUCOSAL LESION
     Dosage: UNK
     Route: 048
     Dates: start: 20100603
  3. ALLOPURINOL [Concomitant]
     Indication: HYPERURICAEMIA
     Dosage: 100 MG, 1X/DAY
     Route: 048
     Dates: start: 20100528
  4. LOXONIN [Concomitant]
     Indication: PAIN
     Dosage: UNK
     Route: 048
     Dates: start: 20110128
  5. MAGLAX [Concomitant]
     Indication: CONSTIPATION
     Dosage: 660 MG, 1X/DAY
     Route: 048
     Dates: start: 20110603
  6. LYRICA [Suspect]
     Dosage: 75 MG, 2X/DAY
     Route: 048
     Dates: start: 20101101, end: 20120517
  7. REZALTAS [Concomitant]
     Indication: HYPERTENSION
     Dosage: ONCE A DAY
     Route: 048
     Dates: start: 20100421
  8. TRICHLORMETHIAZIDE [Concomitant]
     Indication: HYPERTENSION
     Dosage: 1 MG, 1X/DAY
     Route: 048
     Dates: start: 20100407

REACTIONS (4)
  - PAIN IN EXTREMITY [None]
  - DELIRIUM [None]
  - ABNORMAL DREAMS [None]
  - CONTUSION [None]
